FAERS Safety Report 23758247 (Version 1)
Quarter: 2024Q2

REPORT INFORMATION
  Report Type: Spontaneous
  Country: JP (occurrence: JP)
  Receive Date: 20240418
  Receipt Date: 20240418
  Transmission Date: 20240716
  Serious: Yes (Other)
  Sender: FDA-Public Use
  Company Number: JP-DSPHARMA-2024SMP005170

PATIENT

DRUGS (10)
  1. LATUDA [Suspect]
     Active Substance: LURASIDONE HYDROCHLORIDE
     Indication: Schizophrenia
     Dosage: 20 MG, QD
     Route: 048
  2. LATUDA [Suspect]
     Active Substance: LURASIDONE HYDROCHLORIDE
     Dosage: 40 MG, QD
     Route: 048
  3. LATUDA [Suspect]
     Active Substance: LURASIDONE HYDROCHLORIDE
     Dosage: 60 MG, QD
     Route: 048
  4. LATUDA [Suspect]
     Active Substance: LURASIDONE HYDROCHLORIDE
     Dosage: 80 MG, QD
     Route: 048
  5. LATUDA [Suspect]
     Active Substance: LURASIDONE HYDROCHLORIDE
     Dosage: 60 MG, QD
     Route: 048
  6. RISPERDAL [Suspect]
     Active Substance: RISPERIDONE
     Indication: Schizophrenia
     Dosage: 3 DF, QD
     Route: 048
  7. RISPERDAL [Suspect]
     Active Substance: RISPERIDONE
     Dosage: 3 DF, QD
     Route: 048
     Dates: end: 20240131
  8. RISPERDAL [Suspect]
     Active Substance: RISPERIDONE
     Dosage: 2.5 DF, QD
     Route: 048
     Dates: start: 20240201, end: 20240325
  9. RISPERDAL [Suspect]
     Active Substance: RISPERIDONE
     Dosage: 3 DF, QD
     Route: 048
     Dates: start: 20240326
  10. LORAZEPAM [Suspect]
     Active Substance: LORAZEPAM
     Indication: Product used for unknown indication
     Dosage: UNK
     Route: 048

REACTIONS (9)
  - Hallucination, visual [Unknown]
  - Restlessness [Unknown]
  - Apathy [Unknown]
  - Restlessness [Unknown]
  - Apathy [Unknown]
  - Liver function test increased [Unknown]
  - Blood triglycerides increased [Unknown]
  - Constipation [Unknown]
  - Prescribed underdose [Unknown]
